FAERS Safety Report 5317870-5 (Version None)
Quarter: 2007Q2

REPORT INFORMATION
  Report Type: 
  Country: None (occurrence: None)
  Receive Date: 20070430
  Receipt Date: 20070413
  Transmission Date: 20071010
  Serious: Yes (Death, Hospitalization, Other)
  Sender: FDA-Public Use
  Company Number: 2007RR-06943

PATIENT
  Age: 85 Year
  Sex: Female

DRUGS (10)
  1. FUROSEMIDE [Suspect]
     Indication: CARDIAC FAILURE CONGESTIVE
     Dosage: 120 MG, QD
  2. XIPAMIDE (XIPAMIDE) [Suspect]
     Indication: CARDIAC FAILURE CONGESTIVE
     Dosage: 40 MG, QD
  3. POTASSIUM-HYDROGENCARBONATE [Concomitant]
  4. DIGITOXIN TAB [Concomitant]
  5. ACENOCOUMAROL (ACENOCOUMAROL) [Concomitant]
  6. PRAVASTATIN [Concomitant]
  7. THYROID HORMONE [Concomitant]
  8. CARVEDILOL [Concomitant]
  9. OMEPRAZOLE [Concomitant]
  10. NICORANDIL [Concomitant]

REACTIONS (7)
  - CARDIAC FAILURE [None]
  - CONDITION AGGRAVATED [None]
  - GENERAL PHYSICAL HEALTH DETERIORATION [None]
  - HYPOKALAEMIA [None]
  - HYPONATRAEMIA [None]
  - MENTAL STATUS CHANGES [None]
  - SOMNOLENCE [None]
